FAERS Safety Report 4454332-1 (Version None)
Quarter: 2004Q3

REPORT INFORMATION
  Report Type: 
  Country: None (occurrence: None)
  Receive Date: 20040920
  Receipt Date: 20040913
  Transmission Date: 20050211
  Serious: Yes (Other)
  Sender: FDA-Public Use
  Company Number: PHFR2004GB03505

PATIENT
  Age: 65 Year
  Sex: Male

DRUGS (13)
  1. CARBAMAZEPINE [Suspect]
     Indication: EPILEPSY
     Dosage: 600MG/DAY
     Route: 048
  2. GABAPENTIN [Concomitant]
     Dosage: 600 MG, TID
     Route: 048
  3. LANSOPRAZOLE [Suspect]
     Indication: ANAEMIA
     Dosage: 30MG/DAY
     Route: 048
     Dates: start: 20040713
  4. ASPIRIN [Concomitant]
     Dosage: 75 MG, QD
     Route: 065
  5. NITROGLYCERIN [Concomitant]
     Dosage: 400 UG DOSE
     Route: 060
  6. LISINOPRIL [Concomitant]
     Dosage: 20 MG, QD
     Route: 065
  7. SIMVASTATIN [Concomitant]
     Dosage: 80MG/DAY
     Route: 065
  8. CODEINE PHOSPHATE [Concomitant]
     Dosage: 30MG  1-2 QID PRN
     Route: 065
  9. ISOSORBIDE [Concomitant]
     Dosage: 20 MG, BID
     Route: 065
  10. AMLODIPINE [Concomitant]
     Dosage: 10 MG, QD
     Route: 065
  11. CARTEOLOL HCL [Concomitant]
     Dosage: 1 DROP BID
     Route: 047
  12. BIMATOPROST [Concomitant]
     Dosage: 1 DROP EACH EYE/DAY
     Route: 047
  13. BISOPROLOL FUMARATE [Concomitant]
     Dosage: 10MG OM
     Route: 048

REACTIONS (2)
  - ABDOMINAL PAIN UPPER [None]
  - DRUG INTERACTION [None]
